FAERS Safety Report 15114202 (Version 2)
Quarter: 2018Q3

REPORT INFORMATION
  Report Type: Spontaneous
  Country: NL (occurrence: NL)
  Receive Date: 20180706
  Receipt Date: 20180711
  Transmission Date: 20181010
  Serious: Yes (Other)
  Sender: FDA-Public Use
  Company Number: NL-PFIZER INC-2018268575

PATIENT
  Age: 63 Year
  Sex: Male

DRUGS (4)
  1. DOCETAXEL. [Suspect]
     Active Substance: DOCETAXEL
     Indication: METASTATIC SALIVARY GLAND CANCER
     Dosage: 75 MG/M2, CYCLIC EVERY 3 WEEKS
     Route: 042
  2. PERTUZUMAB. [Suspect]
     Active Substance: PERTUZUMAB
     Dosage: 420 MG, CYCLIC EVERY 3 WEEKS
     Route: 042
  3. TRASTUZUMAB. [Suspect]
     Active Substance: TRASTUZUMAB
     Indication: METASTATIC SALIVARY GLAND CANCER
     Dosage: 600 MG, CYCLIC EVERY 3 WEEKS
     Route: 058
  4. PERTUZUMAB. [Suspect]
     Active Substance: PERTUZUMAB
     Indication: METASTATIC SALIVARY GLAND CANCER
     Dosage: 840 MG, CYCLIC LOADING DOSE
     Route: 042

REACTIONS (3)
  - Radiation injury [Unknown]
  - Subcutaneous abscess [Unknown]
  - Pharyngeal abscess [Unknown]
